FAERS Safety Report 15485673 (Version 1)
Quarter: 2018Q4

REPORT INFORMATION
  Report Type: Spontaneous
  Country: JP (occurrence: JP)
  Receive Date: 20181010
  Receipt Date: 20181010
  Transmission Date: 20190205
  Serious: Yes (Hospitalization)
  Sender: FDA-Public Use
  Company Number: JP-ANIPHARMA-2018-JP-000162

PATIENT
  Age: 73 Year
  Sex: Female

DRUGS (3)
  1. LORAZEPAM (NON-SPECIFIC) [Suspect]
     Active Substance: LORAZEPAM
     Indication: PRODUCT USED FOR UNKNOWN INDICATION
  2. ADRENALINE [Suspect]
     Active Substance: EPINEPHRINE
     Indication: CARDIAC ARREST
     Route: 051
  3. ESCITALOPRAM [Suspect]
     Active Substance: ESCITALOPRAM OXALATE
     Indication: PRODUCT USED FOR UNKNOWN INDICATION

REACTIONS (4)
  - Left ventricle outflow tract obstruction [Recovered/Resolved]
  - Cardiogenic shock [Recovered/Resolved]
  - Pulseless electrical activity [Recovered/Resolved]
  - Haemolytic anaemia [Recovered/Resolved]
